FAERS Safety Report 5648430-4 (Version None)
Quarter: 2008Q1

REPORT INFORMATION
  Report Type: 
  Country: None (occurrence: None)
  Receive Date: 20080131
  Receipt Date: 20071202
  Transmission Date: 20080703
  Serious: No
  Sender: FDA-Public Use
  Company Number: US200708000075

PATIENT
  Age: 64 Year
  Sex: Female
  Weight: 98.4 kg

DRUGS (7)
  1. BYETTA [Suspect]
     Indication: TYPE 2 DIABETES MELLITUS
     Dosage: 5 UG 2/D SUBCUTANEOUS; 10 UG 2/D SUBCUTANEOUS
     Route: 058
     Dates: start: 20070730, end: 20071117
  2. BYETTA [Suspect]
     Indication: TYPE 2 DIABETES MELLITUS
     Dosage: 5 UG 2/D SUBCUTANEOUS; 10 UG 2/D SUBCUTANEOUS
     Route: 058
     Dates: start: 20070730
  3. BYETTA [Suspect]
     Indication: TYPE 2 DIABETES MELLITUS
     Dosage: 5 UG 2/D SUBCUTANEOUS; 10 UG 2/D SUBCUTANEOUS
     Route: 058
     Dates: start: 20071118
  4. BYETTA [Suspect]
  5. ACTOS [Concomitant]
  6. . [Suspect]
  7. . [Concomitant]

REACTIONS (4)
  - CHEST DISCOMFORT [None]
  - DIZZINESS [None]
  - HEADACHE [None]
  - WEIGHT DECREASED [None]
